FAERS Safety Report 16657142 (Version 5)
Quarter: 2019Q3

REPORT INFORMATION
  Report Type: Report from Study
  Country: DE (occurrence: DE)
  Receive Date: 20190801
  Receipt Date: 20190927
  Transmission Date: 20191004
  Serious: Yes (Hospitalization, Other)
  Sender: FDA-Public Use
  Company Number: DE-ALNYLAM PHARMACEUTICALS, INC.-ALN-2019-000549

PATIENT

DRUGS (31)
  1. ALN-TTR02 [Suspect]
     Active Substance: PATISIRAN SODIUM
     Indication: HEREDITARY NEUROPATHIC AMYLOIDOSIS
     Dosage: 0.3 MILLIGRAM/KILOGRAM, Q3W
     Route: 042
     Dates: start: 20170420
  2. DEXAMETHASONE. [Concomitant]
     Active Substance: DEXAMETHASONE
     Indication: PROPHYLAXIS
     Dosage: UNK
     Route: 042
     Dates: start: 20170420
  3. PARACETAMOL [Concomitant]
     Active Substance: ACETAMINOPHEN
     Indication: PROPHYLAXIS
     Dosage: UNK
     Route: 048
     Dates: start: 20170420
  4. RANITIDINE. [Concomitant]
     Active Substance: RANITIDINE
     Indication: PROPHYLAXIS
     Dosage: UNK
     Route: 042
     Dates: start: 20170420
  5. APIXABAN [Concomitant]
     Active Substance: APIXABAN
     Indication: THROMBOSIS PROPHYLAXIS
     Dosage: 5 MILLIGRAM, BID
     Route: 048
     Dates: start: 20180522
  6. ERYTROMYCIN [Concomitant]
     Active Substance: ERYTHROMYCIN
     Indication: GASTROENTERITIS
     Dosage: UNK MILLIGRAM, UNK
     Route: 042
     Dates: start: 20190512, end: 20190516
  7. FUROSEMIDE. [Concomitant]
     Active Substance: FUROSEMIDE
     Indication: PROPHYLAXIS
     Dosage: 10 MILLIGRAM, QD
     Route: 048
     Dates: start: 20170123
  8. PREGABALIN. [Concomitant]
     Active Substance: PREGABALIN
     Dosage: 150 MILLIGRAM, QD
     Route: 048
     Dates: start: 2012
  9. NOVAMINSULFON [Concomitant]
     Active Substance: METAMIZOLE
     Indication: HERPES ZOSTER
     Dosage: 35 UNK, PRN
     Dates: start: 20170517, end: 20190901
  10. NITROFURANTOIN. [Concomitant]
     Active Substance: NITROFURANTOIN
     Indication: PROPHYLAXIS URINARY TRACT INFECTION
     Dosage: 100 MILLIGRAM, BID
     Route: 048
     Dates: start: 20190527, end: 20190531
  11. SIMVASTATIN. [Concomitant]
     Active Substance: SIMVASTATIN
     Indication: HYPERCHOLESTEROLAEMIA
     Dosage: 40 MILLIGRAM, QD
     Route: 048
     Dates: start: 201505
  12. ACIKLOVIR [Concomitant]
     Dosage: UNK MILLIGRAM
     Route: 042
     Dates: start: 20190512, end: 20190516
  13. LAUROMACROGOL [Concomitant]
     Indication: HERPES ZOSTER
     Dosage: 400 MILLIGRAM, QID
     Route: 061
     Dates: start: 20190512
  14. PANTOPRAZOL [Concomitant]
     Active Substance: PANTOPRAZOLE SODIUM
     Indication: GASTRITIS PROPHYLAXIS
     Dosage: 40 MILLIGRAM, QD
     Route: 048
     Dates: start: 20190517, end: 20190916
  15. JODID [Concomitant]
     Active Substance: IODINE
     Indication: HYPOTHYROIDISM
     Dosage: 150 MICROGRAM, QD
     Route: 048
     Dates: start: 20161021
  16. ONDANSETRON [Concomitant]
     Active Substance: ONDANSETRON
     Indication: GASTROENTERITIS
     Dosage: UNK MILLIGRAM, UNK
     Route: 042
     Dates: start: 20190512, end: 20190516
  17. SPIRONOLACTONE. [Concomitant]
     Active Substance: SPIRONOLACTONE
     Indication: CARDIAC FAILURE
     Dosage: 25 MILLIGRAM, QD
     Route: 048
     Dates: start: 20170123
  18. ACIKLOVIR [Concomitant]
     Indication: HERPES ZOSTER
     Dosage: 800 MILLIGRAMM, 5X DAY
     Route: 048
     Dates: start: 20190517, end: 20190522
  19. LAUROMACROGOL [Concomitant]
     Indication: NEURALGIA
  20. PREGABALIN. [Concomitant]
     Active Substance: PREGABALIN
     Indication: POLYNEUROPATHY
     Dosage: 75 MILLIGRAM, TID
     Route: 048
     Dates: start: 2012
  21. VITAMIN A [Concomitant]
     Active Substance: VITAMIN A
     Indication: PROPHYLAXIS
     Dosage: 5000 MILLIGRAM, QD
     Route: 048
     Dates: start: 20180731
  22. VITAMINE D [Concomitant]
     Active Substance: CHOLECALCIFEROL
     Indication: VITAMIN D DEFICIENCY
     Dosage: 20000 INTERNATIONAL UNIT, EVERY WEEK
     Route: 048
     Dates: start: 20180930
  23. IRBESARTAN. [Concomitant]
     Active Substance: IRBESARTAN
     Indication: HYPERTENSION
     Dosage: 37.5 MILLIGRAM, QD
     Route: 048
     Dates: start: 20170123
  24. OMEPRAZOL [Concomitant]
     Active Substance: OMEPRAZOLE
     Indication: GASTRITIS PROPHYLAXIS
     Dosage: 20 MILLIGRAM, QOD
     Route: 048
     Dates: start: 20180218, end: 20190516
  25. NOVAMINSULFON [Concomitant]
     Active Substance: METAMIZOLE
     Indication: NEURALGIA
  26. CETIRIZINE [Concomitant]
     Active Substance: CETIRIZINE HYDROCHLORIDE
     Indication: PROPHYLAXIS
     Dosage: UNK
     Route: 048
     Dates: start: 20170420
  27. TORASEMID [Concomitant]
     Active Substance: TORSEMIDE
     Indication: OEDEMA
     Dosage: 5 MILLIGRAM
     Dates: start: 20180503
  28. ENOXAPARIN [Concomitant]
     Active Substance: ENOXAPARIN
     Indication: PROPHYLAXIS
     Dosage: 8000 INTERNATIONAL UNIT, QD
     Route: 058
     Dates: start: 20190728
  29. LEVOTHYROXIN [Concomitant]
     Active Substance: LEVOTHYROXINE
     Indication: HYPOTHYROIDISM
     Dosage: 100 MILLIGRAM, QD
     Route: 048
     Dates: start: 20170123
  30. POTASSIUM [Concomitant]
     Active Substance: POTASSIUM
     Indication: HYPOKALAEMIA
     Dosage: 600 MILLIGRAM, BID
     Route: 048
     Dates: start: 20190512, end: 20190516
  31. TRAMADOL HYDROCHLORIDE. [Concomitant]
     Active Substance: TRAMADOL HYDROCHLORIDE
     Indication: HERPES ZOSTER
     Dosage: 100 MILLIGRAM, BID
     Route: 048
     Dates: start: 20190512, end: 20190516

REACTIONS (2)
  - Breast cancer [Recovered/Resolved]
  - Metastases to lymph nodes [Recovered/Resolved]

NARRATIVE: CASE EVENT DATE: 20190614
